FAERS Safety Report 7051630-2 (Version None)
Quarter: 2010Q4

REPORT INFORMATION
  Report Type: 
  Country: None (occurrence: None)
  Receive Date: 20101019
  Receipt Date: 20101007
  Transmission Date: 20110411
  Serious: Yes (Life-Threatening)
  Sender: FDA-Public Use
  Company Number: GB-ROCHE-732247

PATIENT
  Age: 44 Year
  Sex: Female

DRUGS (4)
  1. HERCEPTIN [Suspect]
     Indication: BREAST CANCER
     Dosage: DOSE FORM, FREQUENCY: NOT PROVIDED, DRUG WITHDRAWN
     Route: 042
     Dates: start: 20100920
  2. CHLORPHENAMINE [Concomitant]
     Route: 042
  3. HYDROCORTISONE [Concomitant]
     Route: 042
  4. PARACETAMOL [Concomitant]
     Route: 042

REACTIONS (2)
  - CARDIOGENIC SHOCK [None]
  - CONGESTIVE CARDIOMYOPATHY [None]
